FAERS Safety Report 5530662-7 (Version None)
Quarter: 2007Q4

REPORT INFORMATION
  Report Type: 
  Country: None (occurrence: None)
  Receive Date: 20071130
  Receipt Date: 20071123
  Transmission Date: 20080405
  Serious: Yes (Hospitalization)
  Sender: FDA-Public Use
  Company Number: D0055133A

PATIENT
  Age: 64 Year
  Sex: Male

DRUGS (6)
  1. LAMICTAL [Suspect]
     Dosage: 350MG PER DAY
     Route: 048
     Dates: end: 20060724
  2. HALDOL [Suspect]
     Dosage: 5MG PER DAY
     Route: 048
     Dates: start: 20060620, end: 20060824
  3. AMITRIPTYLINE HCL [Suspect]
     Dosage: 100MG PER DAY
     Route: 048
     Dates: start: 20060606, end: 20060629
  4. LITHIUM SULPHATE [Suspect]
     Dosage: 1320MG PER DAY
     Route: 048
     Dates: start: 20060608
  5. AKINETON [Suspect]
     Dosage: 4MG PER DAY
     Route: 065
     Dates: start: 20060622, end: 20060629
  6. TAVOR [Concomitant]
     Dosage: 1MG PER DAY
     Route: 048
     Dates: start: 20070608

REACTIONS (5)
  - AGGRESSION [None]
  - DELIRIUM [None]
  - DISORIENTATION [None]
  - HALLUCINATION, VISUAL [None]
  - RESTLESSNESS [None]
